FAERS Safety Report 8780986 (Version 2)
Quarter: 2013Q2

REPORT INFORMATION
  Report Type: Spontaneous
  Country: JP (occurrence: JP)
  Receive Date: 20120913
  Receipt Date: 20130502
  Transmission Date: 20140414
  Serious: Yes (Other)
  Sender: FDA-Public Use
  Company Number: JP-009507513-1209JPN003847

PATIENT
  Age: 76 Year
  Sex: Female

DRUGS (1)
  1. PREMINENT TABLETS [Suspect]
     Dosage: DAILY DOSE UNKNOWN
     Route: 048

REACTIONS (1)
  - Rhabdomyolysis [Unknown]
